FAERS Safety Report 25437978 (Version 1)
Quarter: 2025Q2

REPORT INFORMATION
  Report Type: Spontaneous
  Country: GB (occurrence: GB)
  Receive Date: 20250616
  Receipt Date: 20250616
  Transmission Date: 20250717
  Serious: Yes (Other)
  Sender: ACCORD
  Company Number: None

PATIENT
  Age: 55 Year
  Sex: Female
  Weight: 82 kg

DRUGS (2)
  1. LETROZOLE [Suspect]
     Active Substance: LETROZOLE
     Indication: Adverse drug reaction
     Dates: start: 20160801, end: 20230403
  2. DABIGATRAN [Concomitant]
     Active Substance: DABIGATRAN
     Indication: Adverse drug reaction
     Dates: start: 20160501

REACTIONS (4)
  - Urticaria [Not Recovered/Not Resolved]
  - Rash pruritic [Unknown]
  - Anal incontinence [Unknown]
  - Urinary incontinence [Unknown]

NARRATIVE: CASE EVENT DATE: 20230403
